FAERS Safety Report 19175780 (Version 1)
Quarter: 2021Q2

REPORT INFORMATION
  Report Type: Spontaneous
  Country: TW (occurrence: TW)
  Receive Date: 20210423
  Receipt Date: 20210423
  Transmission Date: 20210717
  Serious: Yes (Death, Other)
  Sender: FDA-Public Use
  Company Number: NVSC2021TW092314

PATIENT
  Age: 46 Year

DRUGS (5)
  1. VOTRIENT [Suspect]
     Active Substance: PAZOPANIB HYDROCHLORIDE
     Indication: UTERINE LEIOMYOSARCOMA
     Dosage: UNK
     Route: 065
     Dates: start: 20170704
  2. GEMCITABINE. [Suspect]
     Active Substance: GEMCITABINE
     Indication: UTERINE LEIOMYOSARCOMA
     Dosage: UNK (6 CYCLES WITH DOCETAXEL)
     Route: 065
     Dates: start: 20170705
  3. CISPLATIN. [Suspect]
     Active Substance: CISPLATIN
     Indication: UTERINE LEIOMYOSARCOMA
     Dosage: UNK (6 CYCLES WITH DOXORUBICIN)
     Route: 065
     Dates: start: 20150902
  4. DOXORUBICIN [Concomitant]
     Active Substance: DOXORUBICIN
     Indication: PRODUCT USED FOR UNKNOWN INDICATION
     Dosage: UNK (6 CYCLES WIRH CISPLATIN)
     Route: 065
     Dates: start: 20150902, end: 20160111
  5. DOCETAXEL. [Suspect]
     Active Substance: DOCETAXEL
     Indication: UTERINE LEIOMYOSARCOMA
     Dosage: UNK (6 CYCLES WITH GEMCITABINE)
     Route: 065
     Dates: start: 20170705

REACTIONS (6)
  - Metastases to lung [Unknown]
  - Diarrhoea [Unknown]
  - Death [Fatal]
  - Hypertension [Unknown]
  - Abdominal pain [Unknown]
  - Decreased appetite [Unknown]

NARRATIVE: CASE EVENT DATE: 20181013
